FAERS Safety Report 25569095 (Version 1)
Quarter: 2025Q3

REPORT INFORMATION
  Report Type: Spontaneous
  Country: US (occurrence: US)
  Receive Date: 20250716
  Receipt Date: 20250716
  Transmission Date: 20251021
  Serious: No
  Sender: NOVO NORDISK
  Company Number: US-NOVOPROD-1418328

PATIENT
  Age: 79 Year
  Sex: Female

DRUGS (3)
  1. OZEMPIC [Suspect]
     Active Substance: SEMAGLUTIDE
     Indication: Type 2 diabetes mellitus
     Dosage: 0.25 MG, QW (FOR FIVE WEEKS)
     Route: 058
     Dates: start: 20250201
  2. OZEMPIC [Suspect]
     Active Substance: SEMAGLUTIDE
     Dosage: 0.50 MG, QW
     Route: 058
  3. LANTUS SOLOSTAR [Concomitant]
     Active Substance: INSULIN GLARGINE
     Indication: Type 2 diabetes mellitus
     Route: 058

REACTIONS (6)
  - Vision blurred [Recovered/Resolved]
  - Decreased appetite [Not Recovered/Not Resolved]
  - Blood glucose increased [Not Recovered/Not Resolved]
  - Device use confusion [Unknown]
  - Incorrect dose administered [Unknown]
  - Product communication issue [Unknown]

NARRATIVE: CASE EVENT DATE: 20250201
